FAERS Safety Report 10923898 (Version 12)
Quarter: 2015Q4

REPORT INFORMATION
  Report Type: Report from Study
  Country: US (occurrence: US)
  Receive Date: 20150318
  Receipt Date: 20151102
  Transmission Date: 20160304
  Serious: Yes (Hospitalization)
  Sender: FDA-Public Use
  Company Number: US-BIOGENIDEC-2015BI032212

PATIENT
  Age: 53 Year
  Sex: Female
  Weight: 74 kg

DRUGS (17)
  1. AVONEX [Suspect]
     Active Substance: INTERFERON BETA-1A
     Indication: MULTIPLE SCLEROSIS
     Route: 030
     Dates: start: 2015
  2. WELLBUTRIN XL [Concomitant]
     Active Substance: BUPROPION HYDROCHLORIDE
     Dates: start: 2006
  3. NEXIUM [Concomitant]
     Active Substance: ESOMEPRAZOLE MAGNESIUM
     Dates: start: 2006
  4. LIDODERM [Concomitant]
     Active Substance: LIDOCAINE
     Dates: start: 2006
  5. AVONEX [Suspect]
     Active Substance: INTERFERON BETA-1A
     Indication: MULTIPLE SCLEROSIS
     Route: 030
     Dates: start: 200706, end: 201207
  6. AMPYRA [Concomitant]
     Active Substance: DALFAMPRIDINE
     Indication: GAIT DISTURBANCE
     Route: 048
     Dates: start: 201011, end: 201109
  7. GABAPENTIN. [Concomitant]
     Active Substance: GABAPENTIN
     Dates: start: 2006
  8. ADVIL [Concomitant]
     Active Substance: IBUPROFEN
  9. NUVIGIL [Concomitant]
     Active Substance: ARMODAFINIL
     Dates: start: 2009
  10. NAPROXEN. [Concomitant]
     Active Substance: NAPROXEN
     Dates: start: 2006
  11. AVONEX [Suspect]
     Active Substance: INTERFERON BETA-1A
     Indication: MULTIPLE SCLEROSIS
     Route: 030
     Dates: start: 201207, end: 201409
  12. ALEVE [Concomitant]
     Active Substance: NAPROXEN SODIUM
  13. ASPIRIN. [Concomitant]
     Active Substance: ASPIRIN
  14. AVONEX [Suspect]
     Active Substance: INTERFERON BETA-1A
     Indication: MULTIPLE SCLEROSIS
     Route: 030
     Dates: start: 201409
  15. AMPYRA [Concomitant]
     Active Substance: DALFAMPRIDINE
     Indication: GAIT DISTURBANCE
     Route: 048
     Dates: start: 201002, end: 2010
  16. ECOTRIN [Concomitant]
     Active Substance: ASPIRIN
  17. BACLOFEN. [Concomitant]
     Active Substance: BACLOFEN
     Dates: start: 2006

REACTIONS (12)
  - Lymphadenopathy [Unknown]
  - Chest pain [Recovered/Resolved]
  - Headache [Recovered/Resolved]
  - Intraductal proliferative breast lesion [Not Recovered/Not Resolved]
  - Adverse drug reaction [Recovered/Resolved]
  - Corneal abrasion [Not Recovered/Not Resolved]
  - Optic neuritis [Not Recovered/Not Resolved]
  - Hypoaesthesia [Recovered/Resolved]
  - Cardiac stress test abnormal [Recovered/Resolved]
  - Depression [Not Recovered/Not Resolved]
  - Prescribed underdose [Not Recovered/Not Resolved]
  - Pyrexia [Recovered/Resolved]

NARRATIVE: CASE EVENT DATE: 201410
